FAERS Safety Report 20896526 (Version 4)
Quarter: 2022Q2

REPORT INFORMATION
  Report Type: Other
  Country: MX (occurrence: None)
  Receive Date: 20220531
  Receipt Date: 20220610
  Transmission Date: 20220721
  Serious: Yes (Hospitalization)
  Sender: FDA-Public Use
  Company Number: MX-ROCHE-3103035

PATIENT
  Age: 59 Year
  Sex: Female
  Weight: 74 kg

DRUGS (6)
  1. RITUXIMAB [Suspect]
     Active Substance: RITUXIMAB
     Indication: Rheumatoid arthritis
     Dosage: RITUXIMAB 50 ML, ONGOING
     Route: 041
     Dates: start: 202105
  2. DIAZEPAM [Suspect]
     Active Substance: DIAZEPAM
     Indication: Anxiety
     Dosage: 4 DROPS AT NIGHT AND 2 IN THE MORNING FOR 2 DAYS OF HOSPITALIZATION
     Route: 065
     Dates: start: 202107
  3. COVID-19 VACCINE [Concomitant]
     Indication: COVID-19
     Dosage: DOSE AND FREQUENCY WERE NOT REPORTED
     Dates: start: 202108
  4. JANUMET [Concomitant]
     Active Substance: METFORMIN HYDROCHLORIDE\SITAGLIPTIN PHOSPHATE
     Indication: Diabetes mellitus
     Route: 048
  5. ASPIRIN [Concomitant]
     Active Substance: ASPIRIN
     Indication: Hypertension
     Route: 048
  6. METHOTREXATE [Concomitant]
     Active Substance: METHOTREXATE
     Indication: Arthritis

REACTIONS (7)
  - COVID-19 [Recovered/Resolved]
  - Anxiety [Recovered/Resolved]
  - Somnolence [Recovered/Resolved]
  - Vision blurred [Recovered/Resolved]
  - Fatigue [Recovered/Resolved]
  - Asthenopia [Recovered/Resolved]
  - Diarrhoea [Recovered/Resolved]

NARRATIVE: CASE EVENT DATE: 20210701
